FAERS Safety Report 16237602 (Version 2)
Quarter: 2020Q2

REPORT INFORMATION
  Report Type: Spontaneous
  Country: US (occurrence: US)
  Receive Date: 20190425
  Receipt Date: 20200629
  Transmission Date: 20200713
  Serious: Yes (Hospitalization, Other)
  Sender: FDA-Public Use
  Company Number: US-SUN PHARMACEUTICAL INDUSTRIES LTD-2019R1-205942

PATIENT
  Age: 28 Year
  Sex: Female

DRUGS (2)
  1. OXYCODONE [Suspect]
     Active Substance: OXYCODONE
     Indication: CARPAL TUNNEL SYNDROME
     Dosage: PRESCRIBED 15MG/BID, BUT PATIENT TOOK 60 MG BY MOUTH AND 60 MG VIA NASAL INHALATION FOR PAST 2 YEARS
     Route: 065
  2. MARIJUANA [Concomitant]
     Active Substance: CANNABIS SATIVA SUBSP. INDICA TOP
     Indication: PRODUCT USED FOR UNKNOWN INDICATION
     Dosage: USING MARIJUANA SINCE AGE 15, AND SYNTHETIC MARIJUANA SINCE PAST 5 MONTHS
     Route: 065

REACTIONS (5)
  - Intentional product use issue [Unknown]
  - Incorrect route of product administration [Unknown]
  - Drug abuse [Unknown]
  - Adrenal insufficiency [Recovered/Resolved]
  - Hypothalamic pituitary adrenal axis suppression [Recovered/Resolved]
